FAERS Safety Report 5137231-1 (Version None)
Quarter: 2006Q4

REPORT INFORMATION
  Report Type: 
  Country: None (occurrence: None)
  Receive Date: 20061030
  Receipt Date: 20050921
  Transmission Date: 20070319
  Serious: No
  Sender: FDA-Public Use
  Company Number: US-GLAXOSMITHKLINE-A0575215A

PATIENT
  Age: 65 Year
  Sex: Female

DRUGS (7)
  1. ADVAIR HFA [Suspect]
     Indication: DRUG USE FOR UNKNOWN INDICATION
     Dosage: 1PUFF TWICE PER DAY
     Route: 055
     Dates: start: 20050629
  2. DOXYCYCLINE [Concomitant]
  3. PREDNISONE TAB [Concomitant]
  4. ALBUTEROL [Concomitant]
  5. NASONEX [Concomitant]
  6. KLOR-CON [Concomitant]
  7. TRAVATAN [Concomitant]

REACTIONS (2)
  - BURNING SENSATION [None]
  - SWELLING FACE [None]
